FAERS Safety Report 25503755 (Version 1)
Quarter: 2025Q3

REPORT INFORMATION
  Report Type: Spontaneous
  Country: EU (occurrence: EU)
  Receive Date: 20250702
  Receipt Date: 20250702
  Transmission Date: 20251021
  Serious: Yes (Hospitalization, Other)
  Sender: AUROBINDO
  Company Number: EU-AFSSAPS-AVCN2025000443

PATIENT
  Age: 15 Year
  Sex: Female

DRUGS (4)
  1. FLUOXETINE [Suspect]
     Active Substance: FLUOXETINE HYDROCHLORIDE
     Indication: Product used for unknown indication
     Route: 048
     Dates: start: 20250417
  2. CANNABIS SATIVA SUBSP. INDICA TOP [Suspect]
     Active Substance: CANNABIS SATIVA SUBSP. INDICA TOP
     Indication: Product used for unknown indication
  3. LIQUID [Suspect]
     Active Substance: TROLAMINE SALICYLATE
     Indication: Product used for unknown indication
  4. PRAZEPAM [Suspect]
     Active Substance: PRAZEPAM
     Indication: Product used for unknown indication
     Route: 048
     Dates: start: 20250403

REACTIONS (7)
  - Loss of consciousness [Recovered/Resolved]
  - Drug abuse [Not Recovered/Not Resolved]
  - Malaise [Recovered/Resolved]
  - Amnesia [Recovered/Resolved]
  - Hypotension [Recovered/Resolved]
  - Bradycardia [Recovered/Resolved]
  - Somnolence [Recovered/Resolved]

NARRATIVE: CASE EVENT DATE: 20250424
